FAERS Safety Report 23741246 (Version 1)
Quarter: 2024Q2

REPORT INFORMATION
  Report Type: Spontaneous
  Country: GB (occurrence: GB)
  Receive Date: 20240415
  Receipt Date: 20240415
  Transmission Date: 20240716
  Serious: Yes (Other)
  Sender: FDA-Public Use
  Company Number: None

PATIENT
  Age: 74 Year
  Sex: Female

DRUGS (24)
  1. SERTRALINE [Suspect]
     Active Substance: SERTRALINE HYDROCHLORIDE
     Indication: Product used for unknown indication
  2. CALCIUM CARBONATE\CHOLECALCIFEROL [Concomitant]
     Active Substance: CALCIUM CARBONATE\CHOLECALCIFEROL
     Dosage: AS PER DERMATOLOGIST
  3. POLYETHYLENE GLYCOL 3350\POTASSIUM CHLORIDE\SODIUM BICARBONATE\SODIUM [Concomitant]
     Active Substance: POLYETHYLENE GLYCOL 3350\POTASSIUM CHLORIDE\SODIUM BICARBONATE\SODIUM CHLORIDE
  4. SYMBICORT [Concomitant]
     Active Substance: BUDESONIDE\FORMOTEROL FUMARATE DIHYDRATE
     Dosage: INCREASE IF NECESSARY TO TWO PUFFS TWICE A DAY PATIENTS OWN DRUGS (PODS)
     Route: 055
  5. ALBUTEROL [Concomitant]
     Active Substance: ALBUTEROL
     Dosage: ONE OR TWO PUFFS TO BE INHALED FOUR TIMES A DAY WHEN REQUIRED
  6. COCODAMOL [Concomitant]
     Active Substance: ACETAMINOPHEN\CODEINE PHOSPHATE
     Indication: Pain
     Dosage: TAKE 1 OR 2 EVERY 4 TO 6 HOURS. PATIENT TAKES 2 TABS ON PATIENTS OWN DRUGS; AS NECESSARY
  7. AMILORIDE [Concomitant]
     Active Substance: AMILORIDE
  8. HYDROXOCOBALAMIN [Concomitant]
     Active Substance: HYDROXOCOBALAMIN
     Dosage: 1 MG / 1 ML
  9. AMLODIPINE [Concomitant]
     Active Substance: AMLODIPINE BESYLATE
     Dosage: SUSPENDED AS PER OESOPHAGOGASTRODUODENOSCOPY (OGS)
  10. GABAPENTIN [Concomitant]
     Active Substance: GABAPENTIN
     Dosage: PATIENTS HALF OWN DRUGS (PODS)
  11. ALBUTEROL [Concomitant]
     Active Substance: ALBUTEROL
  12. NORTRIPTYLINE [Concomitant]
     Active Substance: NORTRIPTYLINE
     Dosage: AT NIGHT PT STATES DOES NOT TAKE ANYMORE AS WAS STOPPED BY GP
  13. METFORMIN [Concomitant]
     Active Substance: METFORMIN HYDROCHLORIDE
     Dosage: WITH EVENING MEAL
  14. LOSARTAN [Concomitant]
     Active Substance: LOSARTAN
     Dosage: SUSPENDED AS PER OGS
  15. DICLOFENAC SODIUM [Concomitant]
     Active Substance: DICLOFENAC\DICLOFENAC SODIUM
     Dosage: APPLY TWICE A DAY
  16. OMEPRAZOLE [Concomitant]
     Active Substance: OMEPRAZOLE
  17. SIMVASTATIN [Concomitant]
     Active Substance: SIMVASTATIN
     Indication: Blood creatine phosphokinase increased
     Dosage: AT NIGHT
  18. MENTHOL [Concomitant]
     Active Substance: MENTHOL
     Dosage: APPLY THREE TIMES DAILY; AS NECESSARY
  19. FEXOFENADINE [Concomitant]
     Active Substance: FEXOFENADINE HYDROCHLORIDE
     Dosage: ONE TO BE TAKEN UP TO FOUR TIMES DAILY; AS NECESSARY
  20. FERROUS SULFATE [Concomitant]
     Active Substance: FERROUS SULFATE
     Dosage: EACH DAY BEFORE FOOD
  21. LEVOTHYROXINE SODIUM [Concomitant]
     Active Substance: LEVOTHYROXINE SODIUM
  22. MEBEVERINE [Concomitant]
     Active Substance: MEBEVERINE
     Dosage: 1 IN THE MORNING AND ONE IN THE EVENING) . SWALLOW WITH AT LEAST 100 ML OF WATER
  23. PARAFFIN\WAX, EMULSIFYING [Concomitant]
     Active Substance: PARAFFIN\WAX, EMULSIFYING
     Dosage: APPLY 3 - 4 TIMES DAILY; AS NECESSARY
  24. COCODAMOL [Concomitant]
     Active Substance: ACETAMINOPHEN\CODEINE PHOSPHATE
     Indication: Pain
     Dosage: TAKE 1 OR 2 EVERY 4 TO 6 HOURS. PATIENT TAKES3 DAILY TABS ON PATIENTS OWN DRUGS; AS NECESSARY

REACTIONS (1)
  - Femur fracture [Unknown]
